FAERS Safety Report 19860934 (Version 5)
Quarter: 2024Q1

REPORT INFORMATION
  Report Type: Report from Study
  Country: DE (occurrence: DE)
  Receive Date: 20210921
  Receipt Date: 20240108
  Transmission Date: 20240409
  Serious: Yes (Other)
  Sender: FDA-Public Use
  Company Number: DE-002147023-NVSC2021DE211561

PATIENT

DRUGS (10)
  1. DICLOFENAC SODIUM [Suspect]
     Active Substance: DICLOFENAC\DICLOFENAC SODIUM
     Indication: Product used for unknown indication
     Dosage: UNK, DICLOFENAX 75
     Dates: start: 202106, end: 202107
  2. PANTOPRAZOLE [Suspect]
     Active Substance: PANTOPRAZOLE
     Indication: Product used for unknown indication
     Dosage: UNK (PANTOPRAZOL 40 ) (TABLET)
     Route: 065
     Dates: start: 202106, end: 202107
  3. ACETAMINOPHEN [Suspect]
     Active Substance: ACETAMINOPHEN
     Indication: Product used for unknown indication
     Dosage: UNK, PARACETAMOL 500
     Route: 065
     Dates: start: 202106
  4. PREGABALIN [Suspect]
     Active Substance: PREGABALIN
     Indication: Product used for unknown indication
     Dosage: UNK (PREGABALIN 75)
     Route: 065
     Dates: start: 202106
  5. OXYCODONE [Suspect]
     Active Substance: OXYCODONE
     Indication: Product used for unknown indication
     Dosage: UNK (OXYCODON 5)
     Route: 065
     Dates: start: 202106
  6. DIENOGEST\ETHINYL ESTRADIOL [Suspect]
     Active Substance: DIENOGEST\ETHINYL ESTRADIOL
     Indication: Product used for unknown indication
     Dosage: UNK
     Route: 065
     Dates: start: 20030607, end: 2009
  7. DIENOGEST\ETHINYL ESTRADIOL [Suspect]
     Active Substance: DIENOGEST\ETHINYL ESTRADIOL
     Dosage: UNK (PAUSED FROM 2009-2012)
     Route: 065
     Dates: start: 2012, end: 20210708
  8. APIXABAN [Concomitant]
     Active Substance: APIXABAN
     Indication: Anticoagulant therapy
     Dosage: UNK
  9. AMOXICILLIN + CLAVULANIC ACID POTASSIUM [Concomitant]
     Indication: Product used for unknown indication
     Dosage: UNK
     Route: 065
  10. AMOXICILLIN + CLAVULANIC ACID POTASSIUM [Concomitant]
     Dosage: UNK
     Route: 065

REACTIONS (7)
  - Pulmonary embolism [Unknown]
  - Post procedural pulmonary embolism [Recovering/Resolving]
  - Pneumonia [Recovering/Resolving]
  - Pulmonary infarction [Unknown]
  - Thrombosis [Recovering/Resolving]
  - Dyspnoea [Recovering/Resolving]
  - Chest pain [Recovering/Resolving]

NARRATIVE: CASE EVENT DATE: 20210623
